FAERS Safety Report 13256288 (Version 1)
Quarter: 2017Q1

REPORT INFORMATION
  Report Type: Spontaneous
  Country: US (occurrence: US)
  Receive Date: 20170221
  Receipt Date: 20170221
  Transmission Date: 20170428
  Serious: Yes (Hospitalization)
  Sender: FDA-Public Use
  Company Number: None

PATIENT

DRUGS (4)
  1. PANTOPRAZOLE 20MG [Suspect]
     Active Substance: PANTOPRAZOLE SODIUM
  2. CIPRO [Suspect]
     Active Substance: CIPROFLOXACIN HYDROCHLORIDE
  3. MEROPENEM 1G [Suspect]
     Active Substance: MEROPENEM
  4. METHYLPREDNISODE 60MG IV [Suspect]
     Active Substance: METHYLPREDNISOLONE

REACTIONS (3)
  - Clostridium test positive [None]
  - Chronic obstructive pulmonary disease [None]
  - Respiratory failure [None]

NARRATIVE: CASE EVENT DATE: 20150201
